FAERS Safety Report 4505328-2 (Version None)
Quarter: 2004Q4

REPORT INFORMATION
  Report Type: 
  Country: None (occurrence: None)
  Receive Date: 20041116
  Receipt Date: 20041103
  Transmission Date: 20050328
  Serious: Yes (Hospitalization, Other)
  Sender: FDA-Public Use
  Company Number: 2004088201

PATIENT
  Age: 68 Year
  Sex: Female

DRUGS (6)
  1. LITHIUM CARBONATE [Suspect]
     Indication: BIPOLAR DISORDER
     Dosage: 400 MG (200 MG , 2 IN 1 D)
  2. ROFECOXIB [Suspect]
     Indication: PAIN
     Dosage: 590 MG (25 MG, 2 IN 1 D)
  3. CARBAMAZEPINE [Concomitant]
  4. PIPAMPERONE (PIPAMPERONE) [Concomitant]
  5. ZOPLICLONE (ZOPLICONE) [Concomitant]
  6. MIRTAZAPINE [Concomitant]

REACTIONS (23)
  - ACCIDENT [None]
  - ATRIOVENTRICULAR BLOCK COMPLETE [None]
  - BLOOD PRESSURE DECREASED [None]
  - BLOOD PRESSURE INCREASED [None]
  - DRUG INTERACTION [None]
  - DRUG LEVEL ABOVE THERAPEUTIC [None]
  - DYSARTHRIA [None]
  - EXTRAPYRAMIDAL DISORDER [None]
  - FALL [None]
  - HEADACHE [None]
  - KYPHOSIS [None]
  - LORDOSIS [None]
  - NAUSEA [None]
  - PAIN IN EXTREMITY [None]
  - PANCYTOPENIA [None]
  - RENAL IMPAIRMENT [None]
  - SINUS ARREST [None]
  - SINUS BRADYCARDIA [None]
  - SOMNOLENCE [None]
  - SPINAL DISORDER [None]
  - THERAPEUTIC AGENT TOXICITY [None]
  - TREMOR [None]
  - VOMITING [None]
